FAERS Safety Report 9520164 (Version 1)
Quarter: 2013Q3

REPORT INFORMATION
  Report Type: Spontaneous
  Country: US (occurrence: US)
  Receive Date: 20130912
  Receipt Date: 20130912
  Transmission Date: 20140515
  Serious: Yes (Hospitalization)
  Sender: FDA-Public Use
  Company Number: US-UCBSA-096828

PATIENT
  Sex: 0

DRUGS (3)
  1. CIMZIA [Suspect]
     Indication: CROHN^S DISEASE
     Dosage: DOSE: UNKNOWN
  2. HUMIRA [Concomitant]
  3. REMICADE [Concomitant]

REACTIONS (8)
  - Malaise [Unknown]
  - Apparent death [Unknown]
  - Body temperature increased [Unknown]
  - Chills [Unknown]
  - Vomiting [Unknown]
  - Diarrhoea [Unknown]
  - Abdominal pain upper [Unknown]
  - Adverse drug reaction [Unknown]
